FAERS Safety Report 8555204-3 (Version None)
Quarter: 2012Q3

REPORT INFORMATION
  Report Type: 
  Country: None (occurrence: None)
  Receive Date: 20120731
  Receipt Date: 20120720
  Transmission Date: 20120928
  Serious: Yes (Hospitalization)
  Sender: FDA-Public Use
  Company Number: NL-ROCHE-1040867

PATIENT
  Age: 51 Year
  Sex: Female
  Weight: 80 kg

DRUGS (7)
  1. TEMAZEPAM [Concomitant]
     Dates: start: 20120101
  2. TEMAZEPAM [Concomitant]
     Dosage: INTERMITTEND
     Dates: start: 20120115
  3. VEMURAFENIB [Suspect]
     Dosage: REDUCED
     Route: 048
     Dates: start: 20120305
  4. CLEMASTINE FUMARATE [Concomitant]
     Dates: start: 20120209
  5. ACETAMINOPHEN [Concomitant]
     Dosage: INTERMITTEND/ MG
     Dates: start: 20120105
  6. VEMURAFENIB [Suspect]
     Indication: METASTATIC MALIGNANT MELANOMA
     Dosage: LAST DOSE PRIOR TO ONSET OF SAE: 09/FEB/2012
     Route: 048
     Dates: start: 20111228, end: 20120210
  7. LIDOCAINE [Concomitant]
     Dates: start: 20120209

REACTIONS (2)
  - HEPATOBILIARY DISEASE [None]
  - LIVER DISORDER [None]
